FAERS Safety Report 26179632 (Version 1)
Quarter: 2025Q4

REPORT INFORMATION
  Report Type: Spontaneous
  Country: US (occurrence: US)
  Receive Date: 20251219
  Receipt Date: 20251219
  Transmission Date: 20260118
  Serious: Yes (Life-Threatening, Hospitalization, Other)
  Sender: SANOFI AVENTIS
  Company Number: US-DialogSolutions-SAAVPROD-PI855244-C1

PATIENT
  Age: 84 Year
  Sex: Male

DRUGS (1)
  1. GLIMEPIRIDE [Suspect]
     Active Substance: GLIMEPIRIDE

REACTIONS (14)
  - Hypoglycaemia [Recovered/Resolved]
  - Decreased appetite [Recovered/Resolved]
  - Encephalopathy [Unknown]
  - Renal failure [Unknown]
  - Cardiogenic shock [Unknown]
  - Respiratory failure [Unknown]
  - Confusional state [Unknown]
  - Respiratory distress [Unknown]
  - Pulmonary oedema [Unknown]
  - Bradycardia [Unknown]
  - Dysarthria [Unknown]
  - Pleural effusion [Unknown]
  - Oedema peripheral [Unknown]
  - Agitation [Unknown]
